FAERS Safety Report 4806997-X (Version None)
Quarter: 2005Q4

REPORT INFORMATION
  Report Type: 
  Country: None (occurrence: None)
  Receive Date: 20051024
  Receipt Date: 20051012
  Transmission Date: 20060501
  Serious: Yes (Hospitalization, Other)
  Sender: FDA-Public Use
  Company Number: US-JNJFOC-20051001430

PATIENT
  Sex: Male
  Weight: 67.13 kg

DRUGS (10)
  1. REMICADE [Suspect]
     Indication: RHEUMATOID ARTHRITIS
     Route: 042
  2. REMICADE [Suspect]
     Route: 042
  3. REMICADE [Suspect]
     Indication: CROHN'S DISEASE
     Route: 042
  4. 6-MP [Concomitant]
     Indication: RHEUMATOID ARTHRITIS
  5. 6-MP [Concomitant]
     Indication: CROHN'S DISEASE
  6. NEURONTIN [Concomitant]
  7. ASACOL [Concomitant]
  8. LIDOCAINE [Concomitant]
  9. KENALOG [Concomitant]
  10. METHOTREXATE [Concomitant]

REACTIONS (11)
  - ARTHROPATHY [None]
  - BRAIN OPERATION [None]
  - DIZZINESS [None]
  - EYE PAIN [None]
  - HEADACHE [None]
  - LETHARGY [None]
  - NAUSEA [None]
  - PARAESTHESIA [None]
  - PYREXIA [None]
  - SPEECH DISORDER [None]
  - TRISMUS [None]
